FAERS Safety Report 14345719 (Version 1)
Quarter: 2018Q1

REPORT INFORMATION
  Report Type: Spontaneous
  Country: US (occurrence: US)
  Receive Date: 20180102
  Receipt Date: 20180102
  Transmission Date: 20180509
  Serious: Yes (Hospitalization)
  Sender: FDA-Public Use
  Company Number: None

PATIENT
  Age: 45 Year
  Sex: Female
  Weight: 45.36 kg

DRUGS (1)
  1. TAUNTON BAY SOAP COMPANY RED VEIN TEA-1LB. PACKAGE (KRATOM) [Suspect]
     Active Substance: MITRAGYNINE\HERBALS
     Indication: PRODUCT USED FOR UNKNOWN INDICATION
     Route: 048
     Dates: start: 20171002, end: 20171002

REACTIONS (5)
  - Malaise [None]
  - Drug screen positive [None]
  - Apparent death [None]
  - Accidental overdose [None]
  - Opiates positive [None]

NARRATIVE: CASE EVENT DATE: 20171002
